FAERS Safety Report 6188533-1 (Version None)
Quarter: 2009Q2

REPORT INFORMATION
  Report Type: 
  Country: None (occurrence: None)
  Receive Date: 20090513
  Receipt Date: 20090501
  Transmission Date: 20091009
  Serious: Yes (Other)
  Sender: FDA-Public Use
  Company Number: DE-WATSON-2009-03149

PATIENT
  Age: 41 Year
  Sex: Female

DRUGS (3)
  1. FERRLECIT [Suspect]
     Indication: IRON DEFICIENCY
     Dosage: 40 MG, DAILY
     Route: 065
     Dates: start: 20090211, end: 20090212
  2. PREDNISOLON                        /00016201/ [Concomitant]
     Indication: CROHN'S DISEASE
     Dosage: UNK
     Route: 048
  3. BUDENOFALK [Concomitant]
     Indication: CROHN'S DISEASE
     Dosage: UNK
     Route: 048

REACTIONS (6)
  - ANAPHYLACTOID REACTION [None]
  - BLOOD PRESSURE DECREASED [None]
  - PRURITUS [None]
  - STRANGURY [None]
  - THROAT IRRITATION [None]
  - URTICARIA [None]
